FAERS Safety Report 4609418-5 (Version None)
Quarter: 2005Q1

REPORT INFORMATION
  Report Type: 
  Country: None (occurrence: None)
  Receive Date: 20050314
  Receipt Date: 20050304
  Transmission Date: 20050727
  Serious: Yes (Life-Threatening, Hospitalization, Other)
  Sender: FDA-Public Use
  Company Number: 2005-01-0678

PATIENT
  Age: 32 Year
  Sex: Male

DRUGS (13)
  1. PEG-INTERFERON ALFA-2B INJECTABLE POWDER [Suspect]
     Indication: HEPATITIS C
     Dosage: 150 MCG QW SUBCUTANEOUS
     Route: 058
     Dates: start: 20040823, end: 20050110
  2. RIBAVIRIN [Suspect]
     Indication: HEPATITIS C
     Dosage: 800 MG QD ORAL
     Route: 048
     Dates: start: 20040823, end: 20050110
  3. AMERGE [Concomitant]
  4. TRAZODONE HCL [Concomitant]
  5. SERAX [Concomitant]
  6. TOPAMAX [Concomitant]
  7. ROGAINE [Concomitant]
  8. TESTOSTERONE [Concomitant]
  9. DICETEL [Concomitant]
  10. PANTOPRAZOLE SODIUM [Concomitant]
  11. RISPERIDONE [Concomitant]
  12. EFFEXOR XR [Concomitant]
  13. KADIAN [Concomitant]

REACTIONS (25)
  - ARTHRITIS BACTERIAL [None]
  - ATELECTASIS [None]
  - BACTERIAL INFECTION [None]
  - BLOOD CULTURE POSITIVE [None]
  - CARDIAC VALVE VEGETATION [None]
  - CEREBRAL INFARCTION [None]
  - CHEST X-RAY ABNORMAL [None]
  - DIARRHOEA [None]
  - DILATATION ATRIAL [None]
  - DISSEMINATED INTRAVASCULAR COAGULATION [None]
  - EMBOLIC STROKE [None]
  - ENDOCARDITIS [None]
  - JOINT EFFUSION [None]
  - MITRAL VALVE DISEASE [None]
  - MITRAL VALVE INCOMPETENCE [None]
  - NAUSEA [None]
  - PETECHIAE [None]
  - PLATELET COUNT DECREASED [None]
  - RENAL FAILURE ACUTE [None]
  - SEPSIS [None]
  - SKIN INFECTION [None]
  - SKIN LESION [None]
  - STAPHYLOCOCCAL INFECTION [None]
  - SUBARACHNOID HAEMORRHAGE [None]
  - VOMITING [None]
